FAERS Safety Report 18312377 (Version 1)
Quarter: 2020Q3

REPORT INFORMATION
  Report Type: Spontaneous
  Country: GB (occurrence: GB)
  Receive Date: 20200925
  Receipt Date: 20200925
  Transmission Date: 20201103
  Serious: Yes (Disabling)
  Sender: FDA-Public Use
  Company Number: GB-REGENERON PHARMACEUTICALS, INC.-2020-78004

PATIENT

DRUGS (4)
  1. MINIMS CHLORAMPHENICOL [Concomitant]
     Indication: ANTIBIOTIC PROPHYLAXIS
     Dosage: 2 ML, QD
     Route: 061
     Dates: start: 20200618, end: 20200624
  2. EYLEA [Suspect]
     Active Substance: AFLIBERCEPT
     Indication: NEOVASCULAR AGE-RELATED MACULAR DEGENERATION
     Dosage: 1 DF, ONCE
     Route: 050
     Dates: start: 20200618, end: 20200618
  3. MINIMS BENOXINATE [Concomitant]
     Indication: LOCAL ANAESTHESIA
     Dosage: 0.5 ML
     Route: 061
     Dates: start: 20200618, end: 20200618
  4. MINIMS POVIDONE IODINE [Concomitant]
     Indication: INFECTION PROPHYLAXIS
     Dosage: 0.4 ML
     Route: 061
     Dates: start: 20200618, end: 20200618

REACTIONS (7)
  - Vision blurred [Unknown]
  - Anterior chamber cell [Unknown]
  - Non-infectious endophthalmitis [Unknown]
  - Photophobia [Unknown]
  - Vitreous floaters [Unknown]
  - Conjunctival hyperaemia [Unknown]
  - Pain [Unknown]

NARRATIVE: CASE EVENT DATE: 20200618
